FAERS Safety Report 5471438-9 (Version None)
Quarter: 2007Q3

REPORT INFORMATION
  Report Type: 
  Country: None (occurrence: None)
  Receive Date: 20070928
  Receipt Date: 20061114
  Transmission Date: 20080115
  Serious: Yes (Hospitalization, Disabling, Other)
  Sender: FDA-Public Use
  Company Number: US-BRISTOL-MYERS SQUIBB COMPANY-13544986

PATIENT
  Age: 75 Year
  Sex: Female
  Weight: 87 kg

DRUGS (9)
  1. DEFINITY [Suspect]
     Indication: ECHOCARDIOGRAM
     Route: 042
     Dates: start: 20061017, end: 20061017
  2. KLOR-CON [Concomitant]
  3. DIGITEK [Concomitant]
  4. LASIX [Concomitant]
  5. COUMADIN [Concomitant]
  6. NOVOLOG [Concomitant]
  7. LEVEMIR [Concomitant]
  8. LISINOPRIL [Concomitant]
  9. COREG [Concomitant]

REACTIONS (2)
  - BACK PAIN [None]
  - CHEST PAIN [None]
